FAERS Safety Report 12358998 (Version 1)
Quarter: 2016Q2

REPORT INFORMATION
  Report Type: Spontaneous
  Country: FR (occurrence: FR)
  Receive Date: 20160512
  Receipt Date: 20160512
  Transmission Date: 20160815
  Serious: Yes (Hospitalization)
  Sender: FDA-Public Use
  Company Number: FR-009507513-1605FRA004015

PATIENT
  Age: 78 Year
  Sex: Female

DRUGS (8)
  1. SODIUM BICARBONATE. [Concomitant]
     Active Substance: SODIUM BICARBONATE
     Dosage: UNK, TID, IN MOUTHWASH (LONG TERM TREATMENT)
     Route: 048
  2. ZYVOXID [Suspect]
     Active Substance: LINEZOLID
     Indication: PYELONEPHRITIS ACUTE
     Dosage: 1 DF, BID
     Dates: start: 20150817, end: 20150910
  3. LASILIX [Concomitant]
     Active Substance: FUROSEMIDE
     Dosage: 0.25 DF, BID (LONG TERM TREATMENT)
     Route: 048
  4. INVANZ [Suspect]
     Active Substance: ERTAPENEM SODIUM
     Indication: PYELONEPHRITIS ACUTE
     Dosage: 0.5 G, QD
     Route: 042
     Dates: start: 20150901, end: 20150910
  5. EUPANTOL [Concomitant]
     Active Substance: PANTOPRAZOLE SODIUM
     Dosage: 1 DF, QAM (LONG TERM TREATMENT)
     Route: 048
  6. TRANSIPEG [Concomitant]
     Active Substance: POLYETHYLENE GLYCOL 3350
     Dosage: 1 DF, QD (LONG TERM TREATMENT)
     Route: 048
  7. IMIPENEM AND CILASTATIN [Concomitant]
     Active Substance: CILASTATIN SODIUM\IMIPENEM
     Indication: PYELONEPHRITIS ACUTE
     Dosage: 1 DF, BID
     Route: 042
     Dates: start: 20150817, end: 20150910
  8. DALACINE [Concomitant]
     Active Substance: CLINDAMYCIN HYDROCHLORIDE
     Indication: PYELONEPHRITIS ACUTE
     Dosage: UNK
     Dates: start: 20150817, end: 20150824

REACTIONS (3)
  - Anaemia [Recovered/Resolved]
  - Leukopenia [Recovered/Resolved]
  - Thrombocytopenia [Recovered/Resolved]

NARRATIVE: CASE EVENT DATE: 20150904
